FAERS Safety Report 18756209 (Version 1)
Quarter: 2021Q1

REPORT INFORMATION
  Report Type: Spontaneous
  Country: US (occurrence: US)
  Receive Date: 20210117
  Receipt Date: 20210117
  Transmission Date: 20210419
  Serious: No
  Sender: FDA-Public Use
  Company Number: None

PATIENT
  Age: 88 Year
  Sex: Female
  Weight: 62.1 kg

DRUGS (10)
  1. D?3 [Concomitant]
     Active Substance: CHOLECALCIFEROL
  2. FLAX OIL [Concomitant]
  3. VITAMIN C [Concomitant]
     Active Substance: ASCORBIC ACID
  4. AMLODIPINE [Concomitant]
     Active Substance: AMLODIPINE BESYLATE
  5. PRESER VISION AREDS2 [Concomitant]
  6. PROBIOTICS [Concomitant]
     Active Substance: PROBIOTICS NOS
  7. MYRBETRIQ [Concomitant]
     Active Substance: MIRABEGRON
  8. SOLIFENACIN. GENERIC FOR VESICARE 5MG [Suspect]
     Active Substance: SOLIFENACIN
     Indication: HYPERTONIC BLADDER
     Dosage: ?          QUANTITY:1 TABLET(S);?
     Route: 048
     Dates: start: 20210112, end: 20210117
  9. PREBIOTICS [Concomitant]
  10. MULTIVITAMINS [Concomitant]
     Active Substance: VITAMINS

REACTIONS (2)
  - Rash [None]
  - Constipation [None]

NARRATIVE: CASE EVENT DATE: 20210114
